FAERS Safety Report 12986771 (Version 1)
Quarter: 2016Q4

REPORT INFORMATION
  Report Type: Spontaneous
  Country: CH (occurrence: CH)
  Receive Date: 20161130
  Receipt Date: 20161130
  Transmission Date: 20170207
  Serious: Yes (Death)
  Sender: FDA-Public Use
  Company Number: CH-TEVA-713516ISR

PATIENT
  Age: 75 Year
  Sex: Male

DRUGS (4)
  1. OXALIPLATIN. [Suspect]
     Active Substance: OXALIPLATIN
     Indication: BILIARY CANCER METASTATIC
     Dosage: 2 CYCLES OF 5FU/OXALIPLATIN
     Dates: start: 201606, end: 201606
  2. 5-FLUOROURACIL [Suspect]
     Active Substance: FLUOROURACIL
     Indication: BILIARY CANCER METASTATIC
     Dosage: 2 CYCLES OF 5FU/OXALIPLATIN
     Dates: start: 201606, end: 201606
  3. CISPLATIN. [Suspect]
     Active Substance: CISPLATIN
     Indication: BILIARY CANCER METASTATIC
     Dosage: 3 CYCLES GEMZAR/CISPLATIN
     Dates: start: 20160401, end: 20160530
  4. GEMZAR [Suspect]
     Active Substance: GEMCITABINE HYDROCHLORIDE
     Indication: BILIARY CANCER METASTATIC
     Dosage: 3 CYCLES OF GEMZAR/CISPLATIN
     Dates: start: 20160401, end: 20160530

REACTIONS (4)
  - Ascites [Fatal]
  - General physical health deterioration [Fatal]
  - Neoplasm progression [Fatal]
  - Jaundice [Fatal]

NARRATIVE: CASE EVENT DATE: 201606
